FAERS Safety Report 10143089 (Version 1)
Quarter: 2014Q2

REPORT INFORMATION
  Report Type: Spontaneous
  Country: US (occurrence: None)
  Receive Date: 20140429
  Receipt Date: 20140429
  Transmission Date: 20141212
  Serious: No
  Sender: FDA-Public Use
  Company Number: None

PATIENT
  Age: 55 Year
  Sex: Female
  Weight: 74.84 kg

DRUGS (1)
  1. NICOTINE [Suspect]
     Indication: SMOKING CESSATION THERAPY
     Dosage: 1
     Route: 048
     Dates: start: 20140201, end: 20140211

REACTIONS (5)
  - Pharyngeal oedema [None]
  - Aphagia [None]
  - Dysphagia [None]
  - Eructation [None]
  - Asthma [None]
